FAERS Safety Report 4690061-7 (Version None)
Quarter: 2005Q2

REPORT INFORMATION
  Report Type: 
  Country: None (occurrence: None)
  Receive Date: 20050614
  Receipt Date: 20050601
  Transmission Date: 20051028
  Serious: Yes (Death)
  Sender: FDA-Public Use
  Company Number: 2002063026

PATIENT
  Age: 84 Year
  Sex: Female

DRUGS (3)
  1. DICLOFENAC SODIUM [Suspect]
     Indication: PAIN
     Dosage: 150 MG (1 D), ORAL
     Route: 048
     Dates: end: 20011128
  2. PREDNISOLONE [Suspect]
     Indication: INFLAMMATION
     Dosage: 5 MG (1 D), ORAL
     Route: 048
  3. ACETAMINOPHEN [Concomitant]

REACTIONS (3)
  - HAEMATEMESIS [None]
  - HAEMOGLOBIN DECREASED [None]
  - MELAENA [None]
